FAERS Safety Report 9953071 (Version 1)
Quarter: 2014Q1

REPORT INFORMATION
  Report Type: Spontaneous
  Country: US (occurrence: US)
  Receive Date: 20140304
  Receipt Date: 20140304
  Transmission Date: 20141002
  Serious: No
  Sender: FDA-Public Use
  Company Number: US-AMGEN-USASP2014001251

PATIENT
  Age: 56 Year
  Sex: Male
  Weight: 101.59 kg

DRUGS (1)
  1. ENBREL [Suspect]
     Indication: PSORIATIC ARTHROPATHY
     Dosage: 50 MG, UNK
     Route: 058
     Dates: start: 2007, end: 2011

REACTIONS (3)
  - Drug ineffective [Unknown]
  - Skin exfoliation [Recovering/Resolving]
  - Arthralgia [Recovering/Resolving]
